FAERS Safety Report 6111645-5 (Version None)
Quarter: 2009Q1

REPORT INFORMATION
  Report Type: 
  Country: None (occurrence: None)
  Receive Date: 20090311
  Receipt Date: 20090227
  Transmission Date: 20090719
  Serious: Yes (Hospitalization, Other)
  Sender: FDA-Public Use
  Company Number: AR-PFIZER INC-2009161895

PATIENT

DRUGS (5)
  1. LYRICA [Suspect]
     Indication: PAIN
     Dosage: 75 MG, 1X/DAY
     Route: 048
     Dates: start: 20090121
  2. AMIODARONE [Concomitant]
     Dosage: UNK
     Route: 048
  3. T4 [Concomitant]
     Dosage: UNK
     Route: 048
  4. VESICARE [Concomitant]
     Dosage: UNK
     Route: 048
  5. ATENIX [Concomitant]
     Dosage: UNK
     Route: 048

REACTIONS (4)
  - DISORIENTATION [None]
  - MOBILITY DECREASED [None]
  - SENSORY DISTURBANCE [None]
  - SOMNOLENCE [None]
